FAERS Safety Report 4595858-X (Version None)
Quarter: 2005Q1

REPORT INFORMATION
  Report Type: 
  Country: None (occurrence: None)
  Receive Date: 20050302
  Receipt Date: 20050222
  Transmission Date: 20050727
  Serious: Yes (Hospitalization)
  Sender: FDA-Public Use
  Company Number: 200511384US

PATIENT
  Age: 24 Year
  Sex: Female

DRUGS (1)
  1. LOVENOX [Suspect]
     Indication: PREGNANCY
     Route: 058

REACTIONS (8)
  - ABDOMINAL PAIN LOWER [None]
  - ASTHENIA [None]
  - CHILLS [None]
  - DIZZINESS [None]
  - DYSPNOEA [None]
  - HEADACHE [None]
  - NAUSEA [None]
  - PREMATURE LABOUR [None]
